FAERS Safety Report 8342972-9 (Version None)
Quarter: 2012Q2

REPORT INFORMATION
  Report Type: 
  Country: None (occurrence: None)
  Receive Date: 20120508
  Receipt Date: 20120426
  Transmission Date: 20120825
  Serious: Yes (Disabling)
  Sender: FDA-Public Use
  Company Number: PHHY2011CA47094

PATIENT
  Sex: Female

DRUGS (1)
  1. SANDOSTATIN LAR [Suspect]
     Indication: ACROMEGALY
     Dosage: 30 MG, QMO
     Route: 030
     Dates: start: 20080729

REACTIONS (16)
  - INFLUENZA LIKE ILLNESS [None]
  - ASTHENIA [None]
  - SCIATIC NERVE INJURY [None]
  - FATIGUE [None]
  - RADIAL NERVE INJURY [None]
  - DEPRESSION [None]
  - FRUSTRATION [None]
  - NAUSEA [None]
  - INJECTION SITE PAIN [None]
  - MUSCULAR WEAKNESS [None]
  - WEIGHT DECREASED [None]
  - ANGER [None]
  - MUSCLE ATROPHY [None]
  - DECREASED APPETITE [None]
  - PAIN [None]
  - MALAISE [None]
